FAERS Safety Report 13111836 (Version 2)
Quarter: 2017Q1

REPORT INFORMATION
  Report Type: Spontaneous
  Country: FR (occurrence: FR)
  Receive Date: 20170113
  Receipt Date: 20170130
  Transmission Date: 20170428
  Serious: Yes (Hospitalization, Other)
  Sender: FDA-Public Use
  Company Number: US-ASTRAZENECA-2017SE01341

PATIENT
  Age: 18891 Day
  Sex: Female

DRUGS (32)
  1. ATARAX [Suspect]
     Active Substance: HYDROXYZINE HYDROCHLORIDE
     Dosage: UNK
     Route: 065
     Dates: start: 20150214, end: 20150425
  2. DOLIPRANE [Concomitant]
     Active Substance: ACETAMINOPHEN
     Dosage: UNK
     Dates: start: 20150326, end: 20160425
  3. MOVICOL [Concomitant]
     Active Substance: POLYETHYLENE GLYCOL 3350\POTASSIUM CHLORIDE\SODIUM BICARBONATE\SODIUM CHLORIDE
  4. INEXIUM [Suspect]
     Active Substance: ESOMEPRAZOLE
     Dosage: DOSE UNKNOWN
     Route: 048
     Dates: start: 20150128, end: 20150424
  5. THERALENE [Suspect]
     Active Substance: TRIMEPRAZINE
     Route: 065
     Dates: start: 20150316, end: 20150425
  6. OXYNORM [Suspect]
     Active Substance: OXYCODONE HYDROCHLORIDE
     Dosage: UNK
     Route: 065
     Dates: start: 20150212, end: 20150430
  7. LOXEN [Concomitant]
     Active Substance: NICARDIPINE HYDROCHLORIDE
     Dosage: UNK
     Dates: start: 20150223, end: 20150426
  8. CORTANCYL [Concomitant]
     Active Substance: PREDNISONE
  9. VITAMIN B12 [Concomitant]
     Active Substance: CYANOCOBALAMIN
  10. AMIKLIN [Concomitant]
     Active Substance: AMIKACIN SULFATE
     Indication: MUCOSAL INFLAMMATION
     Dates: start: 20150422
  11. PERINDOPRIL [Concomitant]
     Active Substance: PERINDOPRIL
  12. OXYCONTIN [Suspect]
     Active Substance: OXYCODONE HYDROCHLORIDE
     Dosage: UNK
     Route: 065
     Dates: start: 20150416, end: 20150430
  13. KEPPRA [Suspect]
     Active Substance: LEVETIRACETAM
     Dosage: UNK
     Route: 065
     Dates: start: 20150211, end: 20150302
  14. LEVOTHYROX [Concomitant]
     Active Substance: LEVOTHYROXINE
  15. DUROGESIC [Concomitant]
     Active Substance: FENTANYL
  16. NOVORAPID [Concomitant]
     Active Substance: INSULIN ASPART
  17. TRIFLUCAN [Concomitant]
     Active Substance: FLUCONAZOLE
     Indication: MUCOSAL INFLAMMATION
     Dates: start: 20150422
  18. LYRICA [Suspect]
     Active Substance: PREGABALIN
     Dosage: 25.0MG UNKNOWN
     Route: 048
     Dates: start: 20150301, end: 20150425
  19. FOSAVANCE [Suspect]
     Active Substance: ALENDRONATE SODIUM\CHOLECALCIFEROL
     Route: 048
     Dates: start: 20150224, end: 20150425
  20. CALCIDOSE /00944201/ [Concomitant]
     Active Substance: CALCIUM CARBONATE\CHOLECALCIFEROL
  21. CYMBALTA [Suspect]
     Active Substance: DULOXETINE HYDROCHLORIDE
     Dosage: UNK
     Route: 048
     Dates: start: 20150413, end: 20150430
  22. HYPERIUM [Concomitant]
     Active Substance: RILMENIDINE PHOSPHATE
  23. ZARZIO [Concomitant]
     Active Substance: FILGRASTIM
  24. ENDOXAN [Suspect]
     Active Substance: CYCLOPHOSPHAMIDE
     Indication: NEUROPSYCHIATRIC LUPUS
     Dosage: 1 DF, MONTHLY (DAY1 ON 24-FEB-2015, DAY2 ON 10-MAR-2015, DAY3 ON 24-MAR-2015 AND DAY4 ON 21-APR-2...
     Route: 065
     Dates: start: 20150224, end: 20150421
  25. BACTRIM [Suspect]
     Active Substance: SULFAMETHOXAZOLE\TRIMETHOPRIM
     Dosage: UNK
     Route: 048
     Dates: start: 20150228, end: 20150425
  26. NEFOPAM MYLAN [Suspect]
     Active Substance: NEFOPAM
     Dosage: UNK
     Route: 065
     Dates: start: 20150216, end: 20150424
  27. VITAMIN B9 [Concomitant]
  28. VOLTARENE [Suspect]
     Active Substance: DICLOFENAC SODIUM
     Dosage: UNK
     Route: 048
     Dates: start: 20150331, end: 20160414
  29. VERSATIS [Concomitant]
     Active Substance: LIDOCAINE
  30. LEVEMIR [Concomitant]
     Active Substance: INSULIN DETEMIR
  31. TAZOCILLINE [Concomitant]
     Active Substance: PIPERACILLIN SODIUM\TAZOBACTAM SODIUM
     Indication: MUCOSAL INFLAMMATION
     Route: 065
     Dates: start: 20150422
  32. TAZOCILLINE [Concomitant]
     Active Substance: PIPERACILLIN SODIUM\TAZOBACTAM SODIUM
     Indication: MUCOSAL INFLAMMATION
     Route: 065
     Dates: start: 20150429

REACTIONS (10)
  - Pneumonia viral [Recovered/Resolved]
  - Cytomegalovirus oesophagitis [Recovered/Resolved]
  - Acute respiratory distress syndrome [Recovered/Resolved]
  - Gastrointestinal haemorrhage [Recovered/Resolved]
  - Pneumonia [Unknown]
  - Oral candidiasis [Unknown]
  - Bicytopenia [Unknown]
  - Stevens-Johnson syndrome [Recovered/Resolved]
  - Toxicity to various agents [Unknown]
  - Pneumonia pneumococcal [Recovered/Resolved]

NARRATIVE: CASE EVENT DATE: 20150421
